FAERS Safety Report 10427912 (Version 1)
Quarter: 2014Q3

REPORT INFORMATION
  Report Type: Report from Study
  Country: BR (occurrence: BR)
  Receive Date: 20140903
  Receipt Date: 20140903
  Transmission Date: 20150326
  Serious: Yes (Death, Other)
  Sender: FDA-Public Use
  Company Number: BR-ALEXION PHARMACEUTICALS INC-A201403373

PATIENT

DRUGS (1)
  1. SOLIRIS [Suspect]
     Active Substance: ECULIZUMAB
     Indication: HAEMOLYTIC URAEMIC SYNDROME
     Dosage: 1200 MG, Q2W
     Route: 042
     Dates: start: 20140729

REACTIONS (10)
  - Condition aggravated [Unknown]
  - Coagulopathy [Unknown]
  - Haemorrhage [Unknown]
  - Hepatic failure [Unknown]
  - Haemolysis [Unknown]
  - Sepsis [Unknown]
  - Infection [Unknown]
  - Pulmonary haemorrhage [Fatal]
  - Tracheostomy [Unknown]
  - Thrombocytopenia [Unknown]
